FAERS Safety Report 23959437 (Version 1)
Quarter: 2024Q2

REPORT INFORMATION
  Report Type: Spontaneous
  Country: US (occurrence: US)
  Receive Date: 20240611
  Receipt Date: 20240611
  Transmission Date: 20240715
  Serious: Yes (Other)
  Sender: FDA-Public Use
  Company Number: US-ORGANON-O2403USA001682

PATIENT
  Sex: Female

DRUGS (2)
  1. ASMANEX [Suspect]
     Active Substance: MOMETASONE FUROATE
     Indication: Asthma
     Dosage: 2 INHALATIONS DAILY
     Dates: start: 20240314
  2. MELATONIN [Suspect]
     Active Substance: MELATONIN
     Dosage: EVERY NIGHT

REACTIONS (8)
  - Respiratory tract oedema [Unknown]
  - Asthma [Recovered/Resolved]
  - Insomnia [Unknown]
  - Device malfunction [Unknown]
  - Product dispensing error [Unknown]
  - Product packaging issue [Unknown]
  - Poor quality device used [Unknown]
  - Product dose omission issue [Unknown]

NARRATIVE: CASE EVENT DATE: 20240101
